FAERS Safety Report 5630022-4 (Version None)
Quarter: 2008Q1

REPORT INFORMATION
  Report Type: 
  Country: None (occurrence: None)
  Receive Date: 20080214
  Receipt Date: 20080206
  Transmission Date: 20080703
  Serious: Yes (Hospitalization)
  Sender: FDA-Public Use
  Company Number: 18343

PATIENT
  Age: 72 Year
  Sex: Female

DRUGS (7)
  1. VINCRISTINE [Suspect]
     Indication: LYMPHOMA
     Dates: start: 20070801
  2. DOXORUBICIN HCL [Suspect]
     Indication: LYMPHOMA
     Dates: start: 20070801
  3. PREDNISOLONE [Suspect]
     Indication: LYMPHOMA
     Dates: start: 20070801
  4. SENDOXAN [Suspect]
     Indication: LYMPHOMA
     Dates: start: 20070801
  5. LEVOTHYROXINE SODIUM [Concomitant]
  6. OMEPRAZOLE [Concomitant]
  7. SPARKAL MITE [Concomitant]

REACTIONS (3)
  - AGRANULOCYTOSIS [None]
  - HERPES VIRUS INFECTION [None]
  - PHARYNGOLARYNGEAL PAIN [None]
